FAERS Safety Report 7801954-3 (Version None)
Quarter: 2011Q4

REPORT INFORMATION
  Report Type: 
  Country: None (occurrence: None)
  Receive Date: 20111007
  Receipt Date: 20111007
  Transmission Date: 20120403
  Serious: Yes (Other)
  Sender: FDA-Public Use
  Company Number: None

PATIENT
  Sex: Female

DRUGS (1)
  1. RECLAST [Suspect]
     Indication: OSTEOPENIA
     Dosage: ONE DOSE PER YEAR
     Dates: start: 20110814, end: 20110914

REACTIONS (8)
  - FEELING ABNORMAL [None]
  - PALPITATIONS [None]
  - TREMOR [None]
  - ARTHRALGIA [None]
  - BLOOD PRESSURE INCREASED [None]
  - CHEST PAIN [None]
  - HEADACHE [None]
  - BODY TEMPERATURE INCREASED [None]
